FAERS Safety Report 8399425-1 (Version None)
Quarter: 2012Q2

REPORT INFORMATION
  Report Type: 
  Country: None (occurrence: None)
  Receive Date: 20120531
  Receipt Date: 20120423
  Transmission Date: 20120825
  Serious: Yes (Other)
  Sender: FDA-Public Use
  Company Number: PHHY2012KR007900

PATIENT
  Sex: Female
  Weight: 48 kg

DRUGS (3)
  1. STEROIDS NOS [Concomitant]
  2. EXJADE [Suspect]
     Indication: IRON OVERLOAD
     Dosage: 20 MG/KG, UNK
     Route: 048
     Dates: start: 20070906
  3. PYRIDOXINE HCL [Concomitant]

REACTIONS (1)
  - OSTEOPOROSIS [None]
